FAERS Safety Report 21510581 (Version 3)
Quarter: 2023Q1

REPORT INFORMATION
  Report Type: Spontaneous
  Country: JP (occurrence: JP)
  Receive Date: 20221026
  Receipt Date: 20230124
  Transmission Date: 20230417
  Serious: Yes (Death, Hospitalization, Other)
  Sender: FDA-Public Use
  Company Number: JP-MSD-2210JPN002444J

PATIENT
  Age: 66 Year
  Sex: Male

DRUGS (1)
  1. KEYTRUDA [Suspect]
     Active Substance: PEMBROLIZUMAB
     Indication: Bladder cancer stage IV
     Dosage: UNKNOWN
     Route: 041
     Dates: start: 20210107, end: 202108

REACTIONS (2)
  - Malignant neoplasm progression [Fatal]
  - Ileus [Recovering/Resolving]

NARRATIVE: CASE EVENT DATE: 20210101
